FAERS Safety Report 5073624-9 (Version None)
Quarter: 2006Q3

REPORT INFORMATION
  Report Type: 
  Country: None (occurrence: None)
  Receive Date: 20060803
  Receipt Date: 20060127
  Transmission Date: 20061208
  Serious: Yes (Death, Other)
  Sender: FDA-Public Use
  Company Number: 2006BH001732

PATIENT
  Age: 69 Year
  Sex: Female

DRUGS (1)
  1. DIANEAL PF2, AMBU-FLEX CONTAINER [Suspect]
     Indication: DIALYSIS
     Dosage: IP
     Route: 033

REACTIONS (4)
  - CARDIAC ARREST [None]
  - GENERAL PHYSICAL HEALTH DETERIORATION [None]
  - HAEMODIALYSIS [None]
  - PERITONITIS [None]
